FAERS Safety Report 13913021 (Version 3)
Quarter: 2017Q3

REPORT INFORMATION
  Report Type: Spontaneous
  Country: US (occurrence: US)
  Receive Date: 20170828
  Receipt Date: 20170915
  Transmission Date: 20171127
  Serious: Yes (Death, Hospitalization)
  Sender: FDA-Public Use
  Company Number: US-BAUSCH-BL-2017-025315

PATIENT
  Age: 67 Year
  Sex: Male
  Weight: 106.24 kg

DRUGS (2)
  1. PROVENGE [Suspect]
     Active Substance: SIPULEUCEL-T
     Route: 042
     Dates: start: 20170818, end: 20170818
  2. PROVENGE [Suspect]
     Active Substance: SIPULEUCEL-T
     Indication: PROSTATE CANCER
     Route: 042
     Dates: start: 20170804, end: 20170804

REACTIONS (4)
  - Prostate cancer [Unknown]
  - Death [Fatal]
  - Dyspnoea [Unknown]
  - Jaundice [Unknown]

NARRATIVE: CASE EVENT DATE: 201708
